FAERS Safety Report 13129504 (Version 2)
Quarter: 2017Q1

REPORT INFORMATION
  Report Type: Spontaneous
  Country: FR (occurrence: FR)
  Receive Date: 20170119
  Receipt Date: 20170213
  Transmission Date: 20170428
  Serious: Yes (Death, Hospitalization)
  Sender: FDA-Public Use
  Company Number: FR-ROCHE-1880914

PATIENT
  Age: 45 Year
  Sex: Female

DRUGS (15)
  1. VALIUM [Concomitant]
     Active Substance: DIAZEPAM
  2. DUPHALAC (FRANCE) [Concomitant]
     Active Substance: LACTULOSE
     Dosage: 1 SACHET
     Route: 065
     Dates: start: 20161227
  3. LOVENOX [Concomitant]
     Active Substance: ENOXAPARIN SODIUM
     Route: 065
     Dates: start: 20161229
  4. NOZINAN [Concomitant]
     Active Substance: LEVOMEPROMAZINE
     Route: 065
     Dates: start: 20161227
  5. NOZINAN [Concomitant]
     Active Substance: LEVOMEPROMAZINE
     Route: 065
     Dates: start: 20161229
  6. NOZINAN [Concomitant]
     Active Substance: LEVOMEPROMAZINE
     Route: 065
     Dates: start: 20161228
  7. THERALENE [Concomitant]
     Active Substance: TRIMEPRAZINE
     Dosage: 20 DROPS
     Route: 065
     Dates: start: 20161226
  8. LOXAPAC [Suspect]
     Active Substance: LOXAPINE SUCCINATE
     Indication: PRODUCT USED FOR UNKNOWN INDICATION
     Route: 048
     Dates: start: 20161226, end: 20161226
  9. ZYPREXA [Suspect]
     Active Substance: OLANZAPINE
     Indication: SCHIZOPHRENIA
     Dosage: SUBSEQUENT THERAPIES RECEIVED ON 29/DEC, 30/DEC, 31/DEC/2016 1 TABLET
     Route: 048
     Dates: start: 20161228
  10. RIVOTRIL [Suspect]
     Active Substance: CLONAZEPAM
     Indication: SCHIZOPHRENIA
     Dosage: SUBSEQUENT THERAPIES RECEIVED ON 28 DEC, 29/DEC, 30/DEC, 31/DEC/2016
     Route: 048
     Dates: start: 20161227
  11. NOZINAN [Suspect]
     Active Substance: LEVOMEPROMAZINE
     Indication: SCHIZOPHRENIA
     Dosage: SUBSEQUENT THERAPY RECEIVED ON 28/DEC/2016
     Route: 042
     Dates: start: 20161227
  12. VALIUM [Concomitant]
     Active Substance: DIAZEPAM
     Indication: SCHIZOPHRENIA
     Dosage: 30 DROPS AT BED TIME
     Route: 065
  13. RIVOTRIL [Suspect]
     Active Substance: CLONAZEPAM
     Dosage: SUBSEQUENT THERAPY RECEIVED ON 28/DEC/2016
     Route: 065
     Dates: start: 20161227
  14. NOZINAN [Suspect]
     Active Substance: LEVOMEPROMAZINE
     Dosage: SUBSEQUENT THERAPIES RECEIVED ON 29/DEC, 30/DEC, 31/DEC/2016
     Route: 048
     Dates: start: 20161228
  15. TERCIAN [Concomitant]
     Active Substance: CYAMEMAZINE
     Route: 065
     Dates: start: 20161227

REACTIONS (5)
  - Malaise [Fatal]
  - Electrocardiogram QT prolonged [Recovered/Resolved]
  - Off label use [Fatal]
  - Cardio-respiratory arrest [Fatal]
  - Product use issue [Fatal]

NARRATIVE: CASE EVENT DATE: 20170101
